FAERS Safety Report 23877980 (Version 1)
Quarter: 2024Q2

REPORT INFORMATION
  Report Type: Spontaneous
  Country: US (occurrence: None)
  Receive Date: 20240520
  Receipt Date: 20240520
  Transmission Date: 20240716
  Serious: Yes (Other)
  Sender: FDA-Public Use
  Company Number: None

PATIENT
  Age: 63 Year
  Sex: Female

DRUGS (6)
  1. AMBRISENTAN [Suspect]
     Active Substance: AMBRISENTAN
     Indication: Pulmonary arterial hypertension
     Dosage: 10MG QD ORAL?
     Route: 048
     Dates: start: 20120430
  2. SILDENAFIL [Concomitant]
     Active Substance: SILDENAFIL
  3. DULOXETINE [Concomitant]
     Active Substance: DULOXETINE
  4. PRUCALOPRIDE [Concomitant]
     Active Substance: PRUCALOPRIDE
  5. ACUCLOVIR [Concomitant]
  6. FLONASE [Concomitant]
     Active Substance: FLUTICASONE PROPIONATE

REACTIONS (2)
  - Aspartate aminotransferase increased [None]
  - Neuropathy peripheral [None]

NARRATIVE: CASE EVENT DATE: 20240518
